FAERS Safety Report 6217937-3 (Version None)
Quarter: 2009Q2

REPORT INFORMATION
  Report Type: 
  Country: None (occurrence: None)
  Receive Date: 20090608
  Receipt Date: 20090121
  Transmission Date: 20091009
  Serious: Yes (Death)
  Sender: FDA-Public Use
  Company Number: US-JNJFOC-20090107055

PATIENT
  Sex: Male
  Weight: 73.48 kg

DRUGS (3)
  1. FENTANYL [Suspect]
     Indication: DRUG USE FOR UNKNOWN INDICATION
     Route: 062
  2. OPIATES [Concomitant]
  3. HYDROCODONE BITARTRATE [Concomitant]

REACTIONS (1)
  - COMPLETED SUICIDE [None]
